FAERS Safety Report 5122271-9 (Version None)
Quarter: 2006Q4

REPORT INFORMATION
  Report Type: 
  Country: None (occurrence: None)
  Receive Date: 20061003
  Receipt Date: 20060929
  Transmission Date: 20070319
  Serious: Yes (Hospitalization)
  Sender: FDA-Public Use
  Company Number: 224093

PATIENT
  Age: 81 Year
  Sex: Female
  Weight: 74.8 kg

DRUGS (7)
  1. XOLAIR [Suspect]
     Indication: ASTHMA
     Dosage: 375 MG, Q2W, SUBCUTANEOUS
     Route: 058
     Dates: start: 20040409, end: 20040722
  2. SINGULAIR [Concomitant]
  3. ADVAIR DISKUS 100/50 [Concomitant]
  4. FLOVENT [Concomitant]
  5. SEREVENT [Concomitant]
  6. ALLEGRA [Concomitant]
  7. LEVOXYL [Concomitant]

REACTIONS (6)
  - ALLERGIC GRANULOMATOUS ANGIITIS [None]
  - ARTHRALGIA [None]
  - CHILLS [None]
  - COORDINATION ABNORMAL [None]
  - DIZZINESS [None]
  - NIGHT SWEATS [None]
